FAERS Safety Report 8558991-3 (Version None)
Quarter: 2012Q3

REPORT INFORMATION
  Report Type: 
  Country: None (occurrence: None)
  Receive Date: 20120802
  Receipt Date: 20120726
  Transmission Date: 20120928
  Serious: Yes (Hospitalization, Other)
  Sender: FDA-Public Use
  Company Number: US-BIOGENIDEC-2010BI024093

PATIENT
  Age: 41 Year
  Sex: Female

DRUGS (11)
  1. GABAPENTIN [Concomitant]
     Route: 048
     Dates: start: 20100624
  2. DETROL [Concomitant]
  3. LEVOTHYROXINE SODIUM [Concomitant]
     Dates: start: 20090601
  4. CIPROFLOXACIN [Concomitant]
     Dates: start: 20030703
  5. OXYBUTYNIN [Concomitant]
     Route: 048
     Dates: start: 20090630
  6. BACLOFEN [Concomitant]
  7. TYSABRI [Suspect]
     Indication: MULTIPLE SCLEROSIS
     Route: 042
     Dates: start: 20080502, end: 20100614
  8. METHYLPREDNISOLONE [Concomitant]
  9. NITROFURANTOIN [Concomitant]
  10. DEXAMETHASONE [Concomitant]
     Dates: start: 20100414
  11. MACRODANTIN [Concomitant]
     Route: 048
     Dates: start: 20100624

REACTIONS (7)
  - PERIARTHRITIS [None]
  - COMPLEX REGIONAL PAIN SYNDROME [None]
  - PROGRESSIVE MULTIFOCAL LEUKOENCEPHALOPATHY [None]
  - IMMUNE RECONSTITUTION SYNDROME [None]
  - URINARY TRACT INFECTION [None]
  - CALCULUS BLADDER [None]
  - VERTEBRAL COLUMN MASS [None]
